FAERS Safety Report 8128348-8 (Version None)
Quarter: 2012Q1

REPORT INFORMATION
  Report Type: 
  Country: None (occurrence: None)
  Receive Date: 20120210
  Receipt Date: 20120201
  Transmission Date: 20120608
  Serious: Yes (Life-Threatening, Hospitalization)
  Sender: FDA-Public Use
  Company Number: JP-ROCHE-1033461

PATIENT
  Sex: Female

DRUGS (8)
  1. LANSOPRAZOLE [Concomitant]
     Route: 048
  2. ASPIRIN [Concomitant]
     Route: 048
  3. PLETAL [Concomitant]
     Route: 048
  4. EPADEL [Concomitant]
     Route: 048
  5. MEDROL [Concomitant]
     Route: 048
  6. ACTEMRA [Suspect]
     Indication: RHEUMATOID ARTHRITIS
     Dosage: DOSAGE IS UNCERTAIN.
     Route: 041
  7. LIPITOR [Concomitant]
     Route: 048
  8. CANDESARTAN CILEXETIL AND HYDROCHLOROTHIAZIDE [Concomitant]
     Route: 048

REACTIONS (7)
  - INFLUENZA [None]
  - MULTI-ORGAN FAILURE [None]
  - DISSEMINATED INTRAVASCULAR COAGULATION [None]
  - SPONDYLITIS [None]
  - SEPSIS [None]
  - PNEUMONIA [None]
  - PLEURISY [None]
